FAERS Safety Report 14303015 (Version 2)
Quarter: 2018Q1

REPORT INFORMATION
  Report Type: Spontaneous
  Country: FR (occurrence: FR)
  Receive Date: 20171219
  Receipt Date: 20180206
  Transmission Date: 20180509
  Serious: Yes (Other)
  Sender: FDA-Public Use
  Company Number: FR-MYLANLABS-2017M1079548

PATIENT
  Age: 45 Year
  Sex: Female
  Weight: 100 kg

DRUGS (6)
  1. LORAZEPAM. [Concomitant]
     Active Substance: LORAZEPAM
     Indication: BIPOLAR DISORDER
     Route: 065
  2. LITHIUM. [Concomitant]
     Active Substance: LITHIUM
     Indication: BIPOLAR DISORDER
     Route: 065
  3. VALPROIC ACID. [Suspect]
     Active Substance: VALPROIC ACID
     Indication: BIPOLAR DISORDER
     Dosage: 500 MG, BID
     Route: 065
  4. LOXAPAC [Interacting]
     Active Substance: LOXAPINE
     Indication: AGITATION
     Dosage: 300 MG, UNK
     Route: 042
  5. MIANSERIN [Concomitant]
     Active Substance: MIANSERIN
     Indication: BIPOLAR DISORDER
     Route: 065
  6. LOXAPAC [Interacting]
     Active Substance: LOXAPINE
     Indication: BIPOLAR DISORDER
     Dosage: 300 MG, UNK
     Route: 042

REACTIONS (14)
  - Alanine aminotransferase increased [Recovered/Resolved]
  - Aspartate aminotransferase increased [Recovered/Resolved]
  - Tremor [Recovered/Resolved]
  - Drug interaction [Unknown]
  - Altered state of consciousness [Recovering/Resolving]
  - Agitation [Recovering/Resolving]
  - Rhabdomyolysis [Recovering/Resolving]
  - Musculoskeletal stiffness [Recovering/Resolving]
  - Extrapyramidal disorder [Recovered/Resolved]
  - Gamma-glutamyltransferase increased [Recovered/Resolved]
  - Neuroleptic malignant syndrome [Recovered/Resolved]
  - Catatonia [Recovered/Resolved]
  - Hyperthermia [Recovered/Resolved]
  - Drug level above therapeutic [Recovered/Resolved]
